FAERS Safety Report 6245216-7 (Version None)
Quarter: 2009Q2

REPORT INFORMATION
  Report Type: 
  Country: None (occurrence: None)
  Receive Date: 20090625
  Receipt Date: 20090619
  Transmission Date: 20091009
  Serious: Yes (Life-Threatening, Hospitalization, Other)
  Sender: FDA-Public Use
  Company Number: PHHO2006TR05484

PATIENT
  Sex: Male

DRUGS (16)
  1. CYCLOSPORINE [Suspect]
     Indication: RENAL TRANSPLANT
     Dosage: NOT REPORTED
     Route: 048
     Dates: start: 20030915, end: 20040130
  2. MYCOPHENOLATE MOFETIL [Suspect]
     Indication: RENAL TRANSPLANT
     Dosage: 1 G, BID
     Route: 048
     Dates: start: 20030915, end: 20031218
  3. PREDNISOLONE [Suspect]
     Indication: RENAL TRANSPLANT
     Dosage: 20 MG, QD
     Route: 048
     Dates: start: 20030915
  4. PREDNISOLONE [Suspect]
     Dosage: 10 MG, QD
     Dates: start: 20030922
  5. SIROLIMUS [Suspect]
     Indication: RENAL TRANSPLANT
     Dosage: 2 MG, QD
     Route: 048
     Dates: start: 20041102
  6. METHYLPREDNISOLONE [Suspect]
     Indication: RENAL TRANSPLANT
     Dosage: 60 MG, QD
     Route: 042
     Dates: start: 20030915
  7. METHYLPREDNISOLONE [Suspect]
     Dosage: 40 MG, QD
     Dates: start: 20030921
  8. FAMOTIDINE [Concomitant]
     Dates: start: 20030915
  9. DILTIAZEM [Concomitant]
     Dates: start: 20030915
  10. ACYCLOVIR [Concomitant]
     Dates: start: 20030916
  11. TRIFLUCAN [Concomitant]
     Dates: start: 20030916
  12. RAMIPRIL [Concomitant]
  13. SULFAMETHOXAZOLE AND TRIMETHOPRIM [Concomitant]
     Dates: start: 20030927
  14. VALSARTAN [Concomitant]
  15. OMEPRAZOL [Concomitant]
  16. HYDROCHLOROTHIAZIDE [Concomitant]

REACTIONS (7)
  - BLOOD CREATININE INCREASED [None]
  - HUMAN POLYOMAVIRUS INFECTION [None]
  - POST PROCEDURAL HAEMATOMA [None]
  - POST PROCEDURAL HAEMORRHAGE [None]
  - RENAL PAIN [None]
  - SURGERY [None]
  - URINE ANALYSIS ABNORMAL [None]
